FAERS Safety Report 4627110-8 (Version None)
Quarter: 2005Q2

REPORT INFORMATION
  Report Type: 
  Country: None (occurrence: None)
  Receive Date: 20050401
  Receipt Date: 20050401
  Transmission Date: 20051028
  Serious: Yes (Hospitalization)
  Sender: FDA-Public Use
  Company Number: None

PATIENT
  Age: 77 Year
  Sex: Male
  Weight: 83 kg

DRUGS (11)
  1. WARFARIN 3MG [Suspect]
     Indication: ATRIAL FIBRILLATION
     Dosage: 3MG UD ORAL
     Route: 048
  2. DILTIAZEM [Concomitant]
  3. PHENYTOIN [Concomitant]
  4. FLUNISOLIDE [Concomitant]
  5. SALSALATE [Concomitant]
  6. ASCORBIC ACID [Concomitant]
  7. FERROUS [Concomitant]
  8. HYDROCORDONE 5/ACETAMINOPHEN [Concomitant]
  9. ALBUTEROL [Concomitant]
  10. IPATROPIUM BROMIDE [Concomitant]
  11. WARFARIN [Concomitant]

REACTIONS (3)
  - ANTICOAGULATION DRUG LEVEL ABOVE THERAPEUTIC [None]
  - GASTROINTESTINAL HAEMORRHAGE [None]
  - INTERNATIONAL NORMALISED RATIO INCREASED [None]
